FAERS Safety Report 8585589-3 (Version None)
Quarter: 2012Q3

REPORT INFORMATION
  Report Type: 
  Country: None (occurrence: None)
  Receive Date: 20120802
  Receipt Date: 20120802
  Transmission Date: 20120928
  Serious: Yes (Hospitalization)
  Sender: FDA-Public Use
  Company Number: None

PATIENT
  Age: 23 Year
  Sex: Female
  Weight: 60.782 kg

DRUGS (1)
  1. MIRENA [Suspect]
     Dates: start: 20120711, end: 20120730

REACTIONS (2)
  - INFECTION [None]
  - ENDOMETRIOSIS [None]
